FAERS Safety Report 6895438-7 (Version None)
Quarter: 2010Q3

REPORT INFORMATION
  Report Type: 
  Country: None (occurrence: None)
  Receive Date: 20100802
  Receipt Date: 20100721
  Transmission Date: 20110219
  Serious: Yes (Hospitalization)
  Sender: FDA-Public Use
  Company Number: BR-BAYER-200923735LA

PATIENT
  Age: 21 Year
  Sex: Female

DRUGS (12)
  1. BETAFERON [Suspect]
     Indication: RELAPSING-REMITTING MULTIPLE SCLEROSIS
     Dosage: BETAJECT
     Route: 058
     Dates: start: 20060601
  2. CLONAZEPAM [Suspect]
     Indication: SLEEP DISORDER THERAPY
     Dosage: TOTAL DAILY DOSE: 0.5 MG  UNIT DOSE: 0.5 MG
     Route: 048
     Dates: end: 20100101
  3. CLONAZEPAM [Suspect]
     Dosage: AS USED: 0.5 MG
     Route: 048
     Dates: start: 20070101, end: 20090101
  4. CLONAZEPAM [Suspect]
     Dosage: TOTAL DAILY DOSE: 0.5 MG  UNIT DOSE: 0.5 MG
     Route: 048
     Dates: start: 20070101
  5. AMITRIPTYLINE HYDROCHLORIDE [Concomitant]
     Indication: DEPRESSION
     Dosage: TOTAL DAILY DOSE: 25 MG  UNIT DOSE: 25 MG
     Route: 048
     Dates: start: 20060101
  6. AMYTRIL [Concomitant]
     Indication: INSOMNIA
     Dosage: TOTAL DAILY DOSE: 75 MG  UNIT DOSE: 75 MG
     Route: 048
     Dates: start: 20091101, end: 20100601
  7. AMYTRIL [Concomitant]
     Dosage: TOTAL DAILY DOSE: 25 MG  UNIT DOSE: 25 MG
     Route: 048
     Dates: start: 20080101, end: 20091101
  8. AMYTRIL [Concomitant]
     Dosage: TOTAL DAILY DOSE: 75 MG  UNIT DOSE: 75 MG
     Route: 048
     Dates: start: 20060101
  9. ALBENDAZOLE [Concomitant]
     Indication: THERAPEUTIC PROCEDURE
     Dosage: AS USED: 3 DF
     Route: 048
     Dates: start: 20070101, end: 20070101
  10. ALBENDAZOLE [Concomitant]
     Route: 048
     Dates: start: 20091001, end: 20091001
  11. CALMAN [Concomitant]
     Indication: SLEEP DISORDER THERAPY
     Dosage: TOTAL DAILY DOSE: 1 DF
     Route: 048
     Dates: start: 20100705, end: 20100719
  12. AMANTADINE HCL [Concomitant]
     Indication: SLEEP DISORDER THERAPY
     Dosage: TOTAL DAILY DOSE: 100 MG  UNIT DOSE: 100 MG
     Route: 048
     Dates: start: 20070101, end: 20080101

REACTIONS (19)
  - ARTHRALGIA [None]
  - BALANCE DISORDER [None]
  - CONSTIPATION [None]
  - DIPLOPIA [None]
  - DIZZINESS [None]
  - DYSPHONIA [None]
  - EYE MOVEMENT DISORDER [None]
  - FALL [None]
  - GAIT DISTURBANCE [None]
  - HEADACHE [None]
  - INFLUENZA [None]
  - INJECTION SITE PAIN [None]
  - MALAISE [None]
  - MENSTRUAL DISORDER [None]
  - MULTIPLE SCLEROSIS [None]
  - MUSCULAR WEAKNESS [None]
  - PYREXIA [None]
  - TREMOR [None]
  - URINARY INCONTINENCE [None]
